FAERS Safety Report 5327877-X (Version None)
Quarter: 2007Q2

REPORT INFORMATION
  Report Type: 
  Country: None (occurrence: None)
  Receive Date: 20070517
  Receipt Date: 20070505
  Transmission Date: 20071010
  Serious: Yes (Other)
  Sender: FDA-Public Use
  Company Number: US-PFIZER INC-2007015731

PATIENT
  Sex: Male

DRUGS (6)
  1. NEURONTIN [Suspect]
     Indication: ANXIETY
  2. EFFEXOR [Suspect]
     Indication: DEPRESSION
     Dates: start: 20020201, end: 20070101
  3. ZOCOR [Concomitant]
  4. BUSPAR [Concomitant]
     Dates: start: 20060801
  5. KLONOPIN [Concomitant]
  6. CELEXA [Concomitant]

REACTIONS (11)
  - ANXIETY [None]
  - ARTHRALGIA [None]
  - BLOOD TESTOSTERONE DECREASED [None]
  - IRRITABILITY [None]
  - LIBIDO DECREASED [None]
  - MAJOR DEPRESSION [None]
  - OBSESSIVE-COMPULSIVE DISORDER [None]
  - PAIN [None]
  - PANIC DISORDER [None]
  - VISION BLURRED [None]
  - VISUAL DISTURBANCE [None]
